FAERS Safety Report 24650874 (Version 1)
Quarter: 2024Q4

REPORT INFORMATION
  Report Type: Spontaneous
  Country: US (occurrence: US)
  Receive Date: 20241122
  Receipt Date: 20241122
  Transmission Date: 20250115
  Serious: No
  Sender: ALVOGEN
  Company Number: US-ALVOGEN-2024093113

PATIENT
  Sex: Female

DRUGS (3)
  1. TERIPARATIDE [Suspect]
     Active Substance: TERIPARATIDE
     Indication: Osteoporosis
     Dosage: FIRST PEN
  2. TERIPARATIDE [Suspect]
     Active Substance: TERIPARATIDE
     Indication: Osteoporosis
     Dosage: SECOND PEN?ONCE A DAY, IN AFTERNOON?EXPIRY DATE: UU-OCT-2024
  3. TERIPARATIDE [Suspect]
     Active Substance: TERIPARATIDE
     Indication: Osteoporosis
     Dosage: THIRD PEN?ONCE A DAY, IN AFTERNOON

REACTIONS (3)
  - Device malfunction [Unknown]
  - Device operational issue [Unknown]
  - Wrong technique in product usage process [Unknown]
